FAERS Safety Report 14508426 (Version 3)
Quarter: 2018Q2

REPORT INFORMATION
  Report Type: Report from Study
  Country: None (occurrence: US)
  Receive Date: 20180209
  Receipt Date: 20180508
  Transmission Date: 20180711
  Serious: Yes (Hospitalization, Other)
  Sender: FDA-Public Use
  Company Number: US-ABBVIE-17K-163-1914040-00

PATIENT
  Age: 43 Year
  Sex: Female

DRUGS (3)
  1. HUMIRA [Suspect]
     Active Substance: ADALIMUMAB
     Route: 058
  2. HUMIRA [Suspect]
     Active Substance: ADALIMUMAB
     Indication: COLITIS ULCERATIVE
     Route: 058
  3. HUMIRA [Suspect]
     Active Substance: ADALIMUMAB
     Indication: CROHN^S DISEASE
     Route: 058
     Dates: end: 201702

REACTIONS (15)
  - Gastrointestinal pain [Unknown]
  - Dehydration [Recovered/Resolved]
  - Device dislocation [Unknown]
  - Gastrointestinal oedema [Unknown]
  - Crohn^s disease [Recovered/Resolved with Sequelae]
  - Intestinal fistula [Unknown]
  - Female genital tract fistula [Not Recovered/Not Resolved]
  - Intestinal obstruction [Unknown]
  - Proctalgia [Not Recovered/Not Resolved]
  - Stress [Unknown]
  - Urinary tract infection [Recovering/Resolving]
  - Diarrhoea [Not Recovered/Not Resolved]
  - Fistula discharge [Not Recovered/Not Resolved]
  - Vulvovaginal pain [Not Recovered/Not Resolved]
  - Drug ineffective [Not Recovered/Not Resolved]

NARRATIVE: CASE EVENT DATE: 2016
